FAERS Safety Report 11820636 (Version 1)
Quarter: 2015Q4

REPORT INFORMATION
  Report Type: Spontaneous
  Country: US (occurrence: US)
  Receive Date: 20151210
  Receipt Date: 20151210
  Transmission Date: 20160305
  Serious: No
  Sender: FDA-Public Use
  Company Number: US-JNJFOC-20150422184

PATIENT
  Sex: Female

DRUGS (13)
  1. IMBRUVICA [Suspect]
     Active Substance: IBRUTINIB
     Indication: CHRONIC LYMPHOCYTIC LEUKAEMIA
     Route: 048
     Dates: start: 20150325, end: 2015
  2. GEMFIBROZIL. [Concomitant]
     Active Substance: GEMFIBROZIL
  3. NASONEX [Concomitant]
     Active Substance: MOMETASONE FUROATE
  4. NIACIN. [Concomitant]
     Active Substance: NIACIN
  5. LYRICA [Concomitant]
     Active Substance: PREGABALIN
  6. HYDROCHLOROTHIAZIDE. [Concomitant]
     Active Substance: HYDROCHLOROTHIAZIDE
  7. TIMOPTIC [Concomitant]
     Active Substance: TIMOLOL MALEATE
  8. GLYBURIDE. [Concomitant]
     Active Substance: GLYBURIDE
  9. LIPITOR [Concomitant]
     Active Substance: ATORVASTATIN CALCIUM
  10. PATADAY [Concomitant]
     Active Substance: OLOPATADINE HYDROCHLORIDE
  11. LISINOPRIL. [Concomitant]
     Active Substance: LISINOPRIL
  12. FELODIPINE. [Concomitant]
     Active Substance: FELODIPINE
  13. ASPIRIN. [Concomitant]
     Active Substance: ASPIRIN

REACTIONS (6)
  - Eyelid disorder [Unknown]
  - Oral herpes [Unknown]
  - Hordeolum [Unknown]
  - Rash [Recovering/Resolving]
  - Stomatitis [Recovering/Resolving]
  - Dry mouth [Not Recovered/Not Resolved]

NARRATIVE: CASE EVENT DATE: 2015
